FAERS Safety Report 6934887-5 (Version None)
Quarter: 2010Q3

REPORT INFORMATION
  Report Type: 
  Country: None (occurrence: None)
  Receive Date: 20100821
  Receipt Date: 20100806
  Transmission Date: 20110219
  Serious: Yes (Other)
  Sender: FDA-Public Use
  Company Number: PHHY2010JP52186

PATIENT
  Age: 65 Year
  Sex: Male

DRUGS (1)
  1. DIOVAN HCT [Suspect]
     Dosage: ONE DOSAGE FORM (80/6.25 MG) DAILY
     Route: 048

REACTIONS (2)
  - ANURIA [None]
  - OEDEMA [None]
